FAERS Safety Report 7551331-8 (Version None)
Quarter: 2011Q2

REPORT INFORMATION
  Report Type: 
  Country: None (occurrence: None)
  Receive Date: 20110616
  Receipt Date: 20091203
  Transmission Date: 20111010
  Serious: Yes (Death, Hospitalization, Other)
  Sender: FDA-Public Use
  Company Number: US-BAYER-200941695NA

PATIENT
  Age: 74 Year
  Sex: Female
  Weight: 79 kg

DRUGS (21)
  1. AMICAR [Concomitant]
     Dosage: 10 G, UNK
     Route: 042
     Dates: start: 20060426, end: 20060426
  2. LEVOPHED [Concomitant]
     Dosage: 0.05 MCG/KG, Q1MIN
     Route: 042
     Dates: start: 20060426, end: 20060426
  3. CALCIUM CHLORIDE [Concomitant]
     Dosage: 1500 MG, UNK
     Route: 042
     Dates: start: 20060426, end: 20060426
  4. ACETYLSALICYLIC ACID SRT [Concomitant]
  5. EPINEPHRINE [Concomitant]
     Dosage: 0.5 MCG/KG, Q1MIN
     Route: 042
     Dates: start: 20060426, end: 20060426
  6. VECURONIUM BROMIDE [Concomitant]
     Dosage: 10 MG, UNK
     Route: 042
     Dates: start: 20060426, end: 20060426
  7. MILRINONE [Concomitant]
     Dosage: 25 MCG/KG, Q1HR
     Route: 042
     Dates: start: 20060426, end: 20060426
  8. PLASMA [Concomitant]
     Dosage: 4 UNK, UNK
     Route: 042
     Dates: start: 20060426, end: 20060426
  9. GLUCOPHAGE [Concomitant]
  10. TRASYLOL [Suspect]
     Indication: CORONARY ARTERY BYPASS
     Route: 042
     Dates: start: 20060426
  11. SUCCINYLCHOLINE CHLORIDE [Concomitant]
     Dosage: 100 MG, UNK
     Route: 042
     Dates: start: 20060426, end: 20060426
  12. PLATELETS [Concomitant]
     Dosage: 2 UNK, UNK
     Route: 042
     Dates: start: 20060426, end: 20060426
  13. VANCOMYCIN [Concomitant]
     Dosage: 1 UNK, UNK
     Dates: start: 20060426, end: 20060426
  14. AMIODARONE HCL [Concomitant]
     Dosage: 150 MG, UNK
     Route: 042
     Dates: start: 20060426, end: 20060426
  15. PROPOFOL [Concomitant]
     Dosage: 100 MG, UNK
     Route: 042
     Dates: start: 20060426, end: 20060426
  16. HEPARIN [Concomitant]
     Dosage: 25000 U, UNK
     Route: 042
     Dates: start: 20060426, end: 20060426
  17. IBUPROFEN [Concomitant]
  18. TYLENOL REGULAR [Concomitant]
  19. BUMEX [Concomitant]
     Dosage: 5 MG, Q1HR
     Route: 042
     Dates: start: 20060426, end: 20060426
  20. PROTAMINE SULFATE [Concomitant]
     Dosage: 380 MG, UNK
     Route: 042
     Dates: start: 20060426, end: 20060426
  21. GENTAMYCIN SULFATE [Concomitant]
     Dosage: 160 MG, UNK
     Route: 042
     Dates: start: 20060426, end: 20060426

REACTIONS (13)
  - RENAL FAILURE [None]
  - PAIN [None]
  - ANHEDONIA [None]
  - RENAL INJURY [None]
  - UNEVALUABLE EVENT [None]
  - MULTI-ORGAN FAILURE [None]
  - EMOTIONAL DISTRESS [None]
  - STRESS [None]
  - DEATH [None]
  - FEAR [None]
  - RENAL IMPAIRMENT [None]
  - ANXIETY [None]
  - INJURY [None]
